FAERS Safety Report 23020331 (Version 1)
Quarter: 2023Q4

REPORT INFORMATION
  Report Type: Spontaneous
  Country: US (occurrence: None)
  Receive Date: 20231002
  Receipt Date: 20231002
  Transmission Date: 20240109
  Serious: Yes (Hospitalization)
  Sender: FDA-Public Use
  Company Number: None

PATIENT
  Age: 6 Year
  Sex: Male
  Weight: 31.7 kg

DRUGS (21)
  1. RUXOLITINIB [Suspect]
     Active Substance: RUXOLITINIB
     Indication: Haemophagocytic lymphohistiocytosis
     Dosage: FREQUENCY : DAILY;?
     Route: 048
     Dates: start: 20230920
  2. DEXAMETHASONE [Concomitant]
     Active Substance: DEXAMETHASONE
  3. FLUTICASONE [Concomitant]
  4. POLYETHYLENE GLYCOL [Concomitant]
  5. ONDANSETRON [Concomitant]
  6. AMOXICILLIN-CLAVULANATE [Concomitant]
  7. GABAPENTIN [Concomitant]
  8. MELATONIN [Concomitant]
     Active Substance: MELATONIN
  9. LATANOPROST [Concomitant]
  10. DORZOLAMIDE-LIMOLOL [Concomitant]
  11. OFLOXACIN [Concomitant]
     Active Substance: OFLOXACIN
  12. LIDOCAINE [Concomitant]
     Active Substance: LIDOCAINE
  13. POTASSIUM CHLORIDE [Concomitant]
  14. SENNOSIDES [Concomitant]
     Active Substance: SENNOSIDES
  15. DIPHENHYDRAMINE [Concomitant]
  16. ACETAMINOPHEN [Concomitant]
     Active Substance: ACETAMINOPHEN
  17. MICAFUNGIN [Concomitant]
     Active Substance: MICAFUNGIN SODIUM
  18. PANTOPRAZOLE [Concomitant]
     Active Substance: PANTOPRAZOLE
  19. LEVOFLOXACIN [Concomitant]
     Active Substance: LEVOFLOXACIN
  20. BACITRACIN ZINC [Concomitant]
  21. SULFAMETHOXALE TRIMETHOPRIM [Concomitant]

REACTIONS (9)
  - Abdominal pain [None]
  - Abdominal distension [None]
  - Pyrexia [None]
  - Gastrointestinal tube insertion [None]
  - Procedural failure [None]
  - Refusal of treatment by relative [None]
  - Infection [None]
  - Haemophagocytic lymphohistiocytosis [None]
  - Condition aggravated [None]

NARRATIVE: CASE EVENT DATE: 20230929
